FAERS Safety Report 21350925 (Version 1)
Quarter: 2022Q3

REPORT INFORMATION
  Report Type: Spontaneous
  Country: FR (occurrence: FR)
  Receive Date: 20220919
  Receipt Date: 20220919
  Transmission Date: 20221027
  Serious: Yes (Congenital Anomaly)
  Sender: FDA-Public Use
  Company Number: None

PATIENT
  Age: 0 Day
  Sex: Female

DRUGS (7)
  1. PROPRANOLOL [Suspect]
     Active Substance: PROPRANOLOL HYDROCHLORIDE
     Indication: Sinus tachycardia
     Dosage: UNIT DOSE: 40 MG , FREQUENCY TIME : 1 DAY, DURATION : 274 DAYS
     Dates: start: 20210715, end: 20220415
  2. ESOMEPRAZOLE [Suspect]
     Active Substance: ESOMEPRAZOLE
     Indication: Duodenogastric reflux
     Dosage: 20 MILLIGRAM DAILY; 20MG X 1 PER DAY., DURATION : 274 DAYS
     Dates: start: 20210715, end: 20220415
  3. VALACYCLOVIR HYDROCHLORIDE [Suspect]
     Active Substance: VALACYCLOVIR HYDROCHLORIDE
     Indication: Opportunistic infection prophylaxis
     Dosage: 1000 MILLIGRAM DAILY; 500MG X2/DAY, DURATION : 274 DAYS
     Dates: start: 20210715, end: 20220415
  4. LEVOTHYROXINE [Suspect]
     Active Substance: LEVOTHYROXINE
     Indication: Hypothyroidism
     Dosage: FREQUENCY TIME : 1 DAY, DURATION : 274 DAYS, UNIT DOSE : 87.5 MG
     Dates: start: 20210715, end: 20220415
  5. PENICILLIN V [Suspect]
     Active Substance: PENICILLIN V
     Indication: Opportunistic infection prophylaxis
     Dosage: 2 MU DAILY; 1MU X 2 PER DAY, DURATION :274 DAYS
     Dates: start: 20210715, end: 20220415
  6. HYDROCORTISONE [Suspect]
     Active Substance: HYDROCORTISONE
     Indication: Graft versus host disease
     Dosage: 20 MILLIGRAM DAILY; 10MG X 2 PER DAY., DURATION : 274 DAYS
     Dates: start: 20210715, end: 20220415
  7. RUXOLITINIB [Suspect]
     Active Substance: RUXOLITINIB
     Indication: Graft versus host disease
     Dosage: 10 MILLIGRAM DAILY; 5MG X 2 PER DAY, STRENGTH: 5MG, DURATION : 28 DAYS
     Dates: start: 20210715, end: 20210812

REACTIONS (2)
  - Foetal growth restriction [Recovering/Resolving]
  - Oligohydramnios [Recovered/Resolved]

NARRATIVE: CASE EVENT DATE: 20220415
